FAERS Safety Report 5803828-6 (Version None)
Quarter: 2008Q3

REPORT INFORMATION
  Report Type: 
  Country: None (occurrence: None)
  Receive Date: 20080708
  Receipt Date: 20080125
  Transmission Date: 20090109
  Serious: No
  Sender: FDA-Public Use
  Company Number: US-BOEHRINGER INGELHEIM GMBH, GERMANY-2007-BP-07313BP

PATIENT
  Sex: Male
  Weight: 86 kg

DRUGS (1)
  1. MIRAPEX [Suspect]
     Indication: PARKINSON'S DISEASE
     Dosage: 0.125 MG UP TO 1.5 MG THREE TIMES DAILY
     Dates: start: 19990129, end: 20060301

REACTIONS (5)
  - DEPRESSION [None]
  - EMOTIONAL DISTRESS [None]
  - HYPERSEXUALITY [None]
  - OBSESSIVE-COMPULSIVE DISORDER [None]
  - PATHOLOGICAL GAMBLING [None]
